FAERS Safety Report 14711565 (Version 3)
Quarter: 2019Q1

REPORT INFORMATION
  Report Type: Report from Study
  Country: US (occurrence: US)
  Receive Date: 20180403
  Receipt Date: 20190131
  Transmission Date: 20190417
  Serious: Yes (Hospitalization, Other)
  Sender: FDA-Public Use
  Company Number: US-GILEAD-2018-0330402

PATIENT
  Age: 31 Year
  Sex: Male

DRUGS (2)
  1. KALYDECO [Suspect]
     Active Substance: IVACAFTOR
     Indication: CYSTIC FIBROSIS
     Dosage: 150 MG, BID
     Route: 065
  2. AZTREONAM LYSINE [Suspect]
     Active Substance: AZTREONAM LYSINE
     Indication: CYSTIC FIBROSIS
     Dosage: 75 MG, TID, QOM
     Route: 055
     Dates: start: 201802

REACTIONS (7)
  - Brain abscess [Unknown]
  - Forced expiratory volume decreased [Unknown]
  - Visual field defect [Not Recovered/Not Resolved]
  - Intentional dose omission [Unknown]
  - Condition aggravated [Not Recovered/Not Resolved]
  - Cerebral cyst [Unknown]
  - Pulmonary function test decreased [Not Recovered/Not Resolved]
